FAERS Safety Report 15516854 (Version 4)
Quarter: 2019Q2

REPORT INFORMATION
  Report Type: Spontaneous
  Country: FR (occurrence: FR)
  Receive Date: 20181017
  Receipt Date: 20190523
  Transmission Date: 20190711
  Serious: Yes (Death, Hospitalization, Other)
  Sender: FDA-Public Use
  Company Number: FR-AUROBINDO-AUR-APL-2018-050575

PATIENT

DRUGS (13)
  1. VORICONAZOLE. [Suspect]
     Active Substance: VORICONAZOLE
     Indication: ANTIFUNGAL TREATMENT
  2. POSACONAZOLE [Suspect]
     Active Substance: POSACONAZOLE
     Indication: MUCORMYCOSIS
  3. PIPERACILLIN AND TAZOBACTAM [Concomitant]
     Active Substance: PIPERACILLIN SODIUM\TAZOBACTAM SODIUM
     Indication: FEBRILE BONE MARROW APLASIA
     Dosage: UNK
     Route: 065
     Dates: start: 201609
  4. FLUDARABINE [Suspect]
     Active Substance: FLUDARABINE PHOSPHATE
     Indication: CHRONIC LYMPHOCYTIC LEUKAEMIA
     Dosage: CYCLIC (FOURTH CHEMOTHERAPY CYCLE) () ; CYCLICAL
     Route: 065
     Dates: start: 20160906
  5. VORICONAZOLE. [Suspect]
     Active Substance: VORICONAZOLE
     Indication: EVIDENCE BASED TREATMENT
  6. AMPHOTERICIN B. [Suspect]
     Active Substance: AMPHOTERICIN B
     Indication: MUCORMYCOSIS
  7. CYCLOPHOSPHAMIDE. [Suspect]
     Active Substance: CYCLOPHOSPHAMIDE
     Indication: CHRONIC LYMPHOCYTIC LEUKAEMIA
     Dosage: CYCLIC (FOURTH CHEMOTHERAPY CYCLE) () ; CYCLICAL
     Route: 065
     Dates: start: 20160906
  8. VORICONAZOLE. [Suspect]
     Active Substance: VORICONAZOLE
     Indication: MUCORMYCOSIS
     Dosage: UNK
     Route: 065
     Dates: start: 201610
  9. RITUXIMAB. [Suspect]
     Active Substance: RITUXIMAB
     Indication: CHRONIC LYMPHOCYTIC LEUKAEMIA
     Dosage: CYCLIC (FOURTH CHEMOTHERAPY)CYCLICAL
     Route: 065
     Dates: start: 20160906
  10. POSACONAZOLE [Suspect]
     Active Substance: POSACONAZOLE
     Indication: ANTIFUNGAL TREATMENT
  11. AMPHOTERICIN B. [Suspect]
     Active Substance: AMPHOTERICIN B
     Indication: ANTIFUNGAL TREATMENT
     Dosage: 10 MG/KG, UNK (INCREASED DOSE)
     Route: 065
     Dates: start: 201610
  12. POSACONAZOLE [Suspect]
     Active Substance: POSACONAZOLE
     Indication: EVIDENCE BASED TREATMENT
     Dosage: 400 MILLIGRAM, TWO TIMES A DAY
     Route: 065
     Dates: start: 201610
  13. AMPHOTERICIN B. [Suspect]
     Active Substance: AMPHOTERICIN B
     Indication: EVIDENCE BASED TREATMENT
     Dosage: 5 MG/KG, UNK
     Route: 065
     Dates: start: 201610

REACTIONS (7)
  - Febrile bone marrow aplasia [Fatal]
  - Mucormycosis [Fatal]
  - Hypotension [Unknown]
  - Respiratory failure [Fatal]
  - Fungal infection [Unknown]
  - Acidosis [Unknown]
  - Drug ineffective [Fatal]

NARRATIVE: CASE EVENT DATE: 2016
